FAERS Safety Report 11401320 (Version 2)
Quarter: 2015Q4

REPORT INFORMATION
  Report Type: Report from Study
  Country: US (occurrence: US)
  Receive Date: 20150820
  Receipt Date: 20151008
  Transmission Date: 20160304
  Serious: Yes (Death, Other)
  Sender: FDA-Public Use
  Company Number: US-GILEAD-2015-0168415

PATIENT
  Age: 68 Year
  Sex: Male

DRUGS (2)
  1. IDELALISIB [Suspect]
     Active Substance: IDELALISIB
     Indication: NON-HODGKIN^S LYMPHOMA STAGE III
     Dosage: 150 MG, BID
     Route: 048
     Dates: start: 20150506
  2. IDELALISIB [Suspect]
     Active Substance: IDELALISIB
     Dosage: UNK UNKNOWN, UNK
     Route: 048
     Dates: start: 201504, end: 201507

REACTIONS (1)
  - Disease progression [Fatal]
